FAERS Safety Report 4748945-7 (Version None)
Quarter: 2005Q3

REPORT INFORMATION
  Report Type: 
  Country: None (occurrence: None)
  Receive Date: 20050819
  Receipt Date: 20050809
  Transmission Date: 20060218
  Serious: Yes (Other)
  Sender: FDA-Public Use
  Company Number: PHHO2005VE12536

PATIENT
  Sex: Female

DRUGS (1)
  1. EXELON [Suspect]
     Indication: DEMENTIA ALZHEIMER'S TYPE
     Dosage: 3 MG, BID

REACTIONS (4)
  - DYSPNOEA [None]
  - LARYNGOSPASM [None]
  - TREATMENT NONCOMPLIANCE [None]
  - TREMOR [None]
